FAERS Safety Report 20152618 (Version 1)
Quarter: 2021Q4

REPORT INFORMATION
  Report Type: Spontaneous
  Country: US (occurrence: None)
  Receive Date: 20211206
  Receipt Date: 20211206
  Transmission Date: 20220303
  Serious: Yes (Disabling)
  Sender: FDA-Public Use
  Company Number: None

PATIENT
  Age: 87 Year
  Sex: Male
  Weight: 83.25 kg

DRUGS (11)
  1. PIOGLITAZONE [Suspect]
     Active Substance: PIOGLITAZONE
     Indication: Type 2 diabetes mellitus
     Dosage: FREQUENCY : DAILY;?
     Route: 048
     Dates: start: 20190101, end: 20211205
  2. METFORMIN [Concomitant]
     Active Substance: METFORMIN HYDROCHLORIDE
  3. GLIPIZIDE [Concomitant]
     Active Substance: GLIPIZIDE
  4. TERAZOSIN [Concomitant]
     Active Substance: TERAZOSIN HYDROCHLORIDE
  5. CARVEDILOL [Concomitant]
     Active Substance: CARVEDILOL
  6. LOSARTAN [Concomitant]
     Active Substance: LOSARTAN
  7. ASPIRIN [Concomitant]
     Active Substance: ASPIRIN
  8. STOOL SOFTERNER [Concomitant]
  9. VITAMINS [Concomitant]
     Active Substance: VITAMINS
  10. JOINT PILL [Concomitant]
  11. LUTEN [Concomitant]

REACTIONS (3)
  - Back pain [None]
  - Chromaturia [None]
  - Joint swelling [None]

NARRATIVE: CASE EVENT DATE: 20211202
